FAERS Safety Report 4344096-4 (Version None)
Quarter: 2004Q2

REPORT INFORMATION
  Report Type: 
  Country: None (occurrence: None)
  Receive Date: 20040419
  Receipt Date: 20410401
  Transmission Date: 20050107
  Serious: Yes (Other)
  Sender: FDA-Public Use
  Company Number: 175349

PATIENT
  Age: 54 Year
  Sex: Female

DRUGS (2)
  1. AVONEX [Suspect]
     Indication: MULTIPLE SCLEROSIS
     Dosage: 30 MCG QW IM
     Route: 030
     Dates: start: 20010216
  2. ACETAMINOPHEN [Concomitant]

REACTIONS (3)
  - LUNG NEOPLASM MALIGNANT [None]
  - METASTASES TO BREAST [None]
  - METASTASES TO NECK [None]
